FAERS Safety Report 10181163 (Version 2)
Quarter: 2014Q2

REPORT INFORMATION
  Report Type: Spontaneous
  Country: US (occurrence: US)
  Receive Date: 20140519
  Receipt Date: 20140519
  Transmission Date: 20141212
  Serious: No
  Sender: FDA-Public Use
  Company Number: US-AMGEN INC.-USASP2014019391

PATIENT
  Age: 60 Year
  Sex: Female
  Weight: 54.42 kg

DRUGS (5)
  1. PROLIA [Suspect]
     Indication: OSTEOPOROSIS
     Dosage: 60 MG, Q6MO
     Route: 058
     Dates: start: 20110401
  2. NASONEX [Concomitant]
     Dosage: UNK UNK, AS NECESSARY
  3. ZYRTEC [Concomitant]
     Dosage: UNK UNK, AS NECESSARY
  4. RANITIDINE                         /00550802/ [Concomitant]
     Dosage: 300 MG, QD
  5. CALCIUM + VITAMIN D                /01483701/ [Concomitant]

REACTIONS (4)
  - Osteoporosis [Recovered/Resolved]
  - Back pain [Not Recovered/Not Resolved]
  - Myalgia [Unknown]
  - Pain in extremity [Recovered/Resolved]
